FAERS Safety Report 6226505-9 (Version None)
Quarter: 2009Q2

REPORT INFORMATION
  Report Type: 
  Country: None (occurrence: None)
  Receive Date: 20090612
  Receipt Date: 20090518
  Transmission Date: 20091009
  Serious: No
  Sender: FDA-Public Use
  Company Number: US-ABBOTT-09P-163-0574295-00

PATIENT
  Sex: Female

DRUGS (5)
  1. HUMIRA [Suspect]
     Indication: RHEUMATOID ARTHRITIS
     Dates: start: 20090101, end: 20090201
  2. HUMIRA [Suspect]
     Dates: start: 20090509
  3. DIABETIC PILLS [Concomitant]
     Indication: DRUG USE FOR UNKNOWN INDICATION
  4. HYPERTENSION PILLS [Concomitant]
     Indication: DRUG USE FOR UNKNOWN INDICATION
  5. CHOLESTEROL PILL [Concomitant]
     Indication: DRUG USE FOR UNKNOWN INDICATION

REACTIONS (3)
  - KIDNEY INFECTION [None]
  - NASOPHARYNGITIS [None]
  - RESPIRATORY TRACT INFECTION [None]
